FAERS Safety Report 24755640 (Version 1)
Quarter: 2024Q4

REPORT INFORMATION
  Report Type: Spontaneous
  Country: US (occurrence: US)
  Receive Date: 20241219
  Receipt Date: 20241219
  Transmission Date: 20250115
  Serious: No
  Sender: SANOFI AVENTIS
  Company Number: US-SANOFI-02342384

PATIENT
  Sex: Male

DRUGS (1)
  1. SEVELAMER CARBONATE [Suspect]
     Active Substance: SEVELAMER CARBONATE
     Dosage: UNK

REACTIONS (1)
  - Wrong technique in product usage process [Unknown]
